FAERS Safety Report 6679015-9 (Version None)
Quarter: 2010Q2

REPORT INFORMATION
  Report Type: 
  Country: None (occurrence: None)
  Receive Date: 20100413
  Receipt Date: 20100406
  Transmission Date: 20101027
  Serious: Yes (Other)
  Sender: FDA-Public Use
  Company Number: US-SANOFI-AVENTIS-2010SA020479

PATIENT

DRUGS (2)
  1. ENOXAPARIN SODIUM [Suspect]
     Route: 065
  2. ARIXTRA [Suspect]
     Route: 065

REACTIONS (2)
  - CREATININE RENAL CLEARANCE DECREASED [None]
  - RENAL FAILURE [None]
